FAERS Safety Report 21706509 (Version 1)
Quarter: 2022Q4

REPORT INFORMATION
  Report Type: Spontaneous
  Country: US (occurrence: None)
  Receive Date: 20221208
  Receipt Date: 20221208
  Transmission Date: 20230113
  Serious: Yes (Other)
  Sender: FDA-Public Use
  Company Number: None

PATIENT
  Age: 40 Year
  Sex: Female
  Weight: 54.4 kg

DRUGS (2)
  1. LITHIUM [Suspect]
     Active Substance: LITHIUM
     Indication: Major depression
  2. LAMICTAL [Suspect]
     Active Substance: LAMOTRIGINE

REACTIONS (2)
  - Tremor [None]
  - Dyskinesia [None]

NARRATIVE: CASE EVENT DATE: 20221113
